FAERS Safety Report 9182987 (Version 1)
Quarter: 2013Q1

REPORT INFORMATION
  Report Type: Spontaneous
  Country: US (occurrence: US)
  Receive Date: 20130322
  Receipt Date: 20130322
  Transmission Date: 20140127
  Serious: Yes (Life-Threatening, Hospitalization)
  Sender: FDA-Public Use
  Company Number: US-BRISTOL-MYERS SQUIBB COMPANY-16422305

PATIENT
  Age: 62 Year
  Sex: Male

DRUGS (10)
  1. ERBITUX [Suspect]
     Indication: COLON CANCER METASTATIC
     Dosage: CYC 1(DAYS1-40),400MG/M2 ON DAY1,250MG/M2 ON DAYS 8,15,22,29,36
     Route: 042
     Dates: start: 20120209
  2. IRINOTECAN [Concomitant]
     Dates: start: 20120209
  3. ONDANSETRON [Concomitant]
     Dates: start: 20120209
  4. DIPHENHYDRAMINE [Concomitant]
     Dates: start: 20120209
  5. DEXAMETHASONE [Concomitant]
     Dates: start: 20120209
  6. PROCHLORPERAZINE [Concomitant]
     Dates: start: 20120209
  7. LOPERAMIDE [Concomitant]
     Dates: start: 20120209
  8. ATROPINE [Concomitant]
     Dates: start: 20120209
  9. ASPIRIN [Concomitant]
  10. DEXTRAN [Concomitant]

REACTIONS (1)
  - Anaphylactic reaction [Recovered/Resolved]
